FAERS Safety Report 18527269 (Version 1)
Quarter: 2020Q4

REPORT INFORMATION
  Report Type: Spontaneous
  Country: US (occurrence: US)
  Receive Date: 20201120
  Receipt Date: 20201120
  Transmission Date: 20210114
  Serious: No
  Sender: FDA-Public Use
  Company Number: US-GLAXOSMITHKLINE-US2020225733

PATIENT
  Sex: Female

DRUGS (2)
  1. FLONASE SENSIMIST ALLERGY RELIEF [Suspect]
     Active Substance: FLUTICASONE FUROATE
     Indication: RHINORRHOEA
     Dosage: 1 DF (1 SPRAY PER NOSTRIL AFTER THE FIRST WEEK )
  2. FLONASE SENSIMIST ALLERGY RELIEF [Suspect]
     Active Substance: FLUTICASONE FUROATE
     Indication: MULTIPLE ALLERGIES
     Dosage: 2 DF (2 SPRAYS PER NOSTRIL )

REACTIONS (1)
  - Therapeutic product effect incomplete [Unknown]
